FAERS Safety Report 5429154-5 (Version None)
Quarter: 2007Q3

REPORT INFORMATION
  Report Type: 
  Country: None (occurrence: None)
  Receive Date: 20070827
  Receipt Date: 20070813
  Transmission Date: 20080115
  Serious: No
  Sender: FDA-Public Use
  Company Number: US020820

PATIENT
  Sex: Female

DRUGS (4)
  1. FENTORA [Suspect]
     Dosage: BUCCAL
     Route: 002
     Dates: start: 20070301, end: 20070730
  2. FENTORA [Suspect]
     Dosage: 400 UG EVERY 30 MINUTES BUCCAL
     Route: 002
     Dates: start: 20070730, end: 20070730
  3. MS CONTIN [Concomitant]
  4. MORPHINE [Concomitant]

REACTIONS (1)
  - DRUG PRESCRIBING ERROR [None]
